FAERS Safety Report 4520545-3 (Version None)
Quarter: 2004Q4

REPORT INFORMATION
  Report Type: 
  Country: None (occurrence: None)
  Receive Date: 20041207
  Receipt Date: 20040928
  Transmission Date: 20050328
  Serious: Yes (Hospitalization, Other)
  Sender: FDA-Public Use
  Company Number: PHBS2004JP13079

PATIENT
  Age: 5 Year
  Sex: Male
  Weight: 30 kg

DRUGS (7)
  1. HOKUNALIN [Concomitant]
     Indication: ASTHMA
     Dosage: 1 MG, TID
     Route: 062
     Dates: start: 20030401, end: 20040401
  2. VENTOLIN [Concomitant]
     Indication: ASTHMA
     Dosage: 0.3 ML
     Dates: start: 20010201
  3. THEO-DUR [Concomitant]
     Indication: ASTHMA
     Dosage: UNK, UNK
     Route: 048
     Dates: start: 20010401, end: 20030416
  4. INTAL [Concomitant]
     Indication: FOOD ALLERGY
     Dosage: UNK, UNK
     Route: 048
     Dates: start: 20010401, end: 20030416
  5. INTAL [Concomitant]
     Indication: ASTHMA
     Dosage: 2 ML
     Dates: start: 20010201
  6. ZADITEN [Suspect]
     Indication: RHINITIS ALLERGIC
     Dosage: UNK, PRN
     Route: 045
     Dates: start: 20020501, end: 20040415
  7. ZADITEN [Suspect]
     Dosage: UNK, UNK
     Route: 048
     Dates: start: 20010401, end: 20030416

REACTIONS (7)
  - ALANINE AMINOTRANSFERASE INCREASED [None]
  - ASPARTATE AMINOTRANSFERASE INCREASED [None]
  - BLOOD BILIRUBIN INCREASED [None]
  - BLOOD LACTATE DEHYDROGENASE INCREASED [None]
  - GAMMA-GLUTAMYLTRANSFERASE INCREASED [None]
  - JAUNDICE [None]
  - LIVER DISORDER [None]
